FAERS Safety Report 5085419-0 (Version None)
Quarter: 2006Q3

REPORT INFORMATION
  Report Type: 
  Country: None (occurrence: None)
  Receive Date: 20060816
  Receipt Date: 20060801
  Transmission Date: 20061208
  Serious: Yes (Hospitalization)
  Sender: FDA-Public Use
  Company Number: 2006AD000051

PATIENT
  Age: 6 Year
  Sex: Female
  Weight: 26.989 kg

DRUGS (2)
  1. KEFLEX [Suspect]
     Indication: TRACHEOBRONCHITIS
     Dosage: SEE IMAGE
     Route: 048
     Dates: start: 20060707, end: 20060701
  2. KEFLEX [Suspect]
     Indication: TRACHEOBRONCHITIS
     Dosage: SEE IMAGE
     Route: 048
     Dates: start: 20060714

REACTIONS (2)
  - PHARMACEUTICAL PRODUCT COMPLAINT [None]
  - PNEUMONIA [None]
